FAERS Safety Report 18600201 (Version 2)
Quarter: 2020Q4

REPORT INFORMATION
  Report Type: Spontaneous
  Country: US (occurrence: US)
  Receive Date: 20201210
  Receipt Date: 20201216
  Transmission Date: 20210114
  Serious: Yes (Other)
  Sender: FDA-Public Use
  Company Number: US-PFIZER INC-2020485505

PATIENT
  Age: 76 Year
  Sex: Female
  Weight: 117.93 kg

DRUGS (3)
  1. PREMARIN [Suspect]
     Active Substance: ESTROGENS, CONJUGATED
     Indication: VULVOVAGINAL DRYNESS
  2. PREMARIN [Suspect]
     Active Substance: ESTROGENS, CONJUGATED
     Indication: HORMONE REPLACEMENT THERAPY
     Dosage: 0.675 MG, 2X/WEEK [APPLY 1 SYRINGE TWICE WEEKLY WEDNESDAY AND SUNDAY]
  3. VENLAFAXINE [Concomitant]
     Active Substance: VENLAFAXINE HYDROCHLORIDE
     Indication: DEPRESSION
     Dosage: 75 MG, 1X/DAY
     Route: 048

REACTIONS (4)
  - Breast mass [Unknown]
  - Off label use [Unknown]
  - Contraindicated product administered [Unknown]
  - Breast cancer recurrent [Unknown]
